FAERS Safety Report 18631624 (Version 1)
Quarter: 2020Q4

REPORT INFORMATION
  Report Type: Spontaneous
  Country: CA (occurrence: CA)
  Receive Date: 20201217
  Receipt Date: 20201217
  Transmission Date: 20210114
  Serious: Yes (Other)
  Sender: FDA-Public Use
  Company Number: CA-PURDUE PHARMA-GBR-2019-0074180

PATIENT
  Age: 47 Year
  Sex: Male

DRUGS (15)
  1. HYDROMORPHONE HYDROCHLORIDE. [Suspect]
     Active Substance: HYDROMORPHONE HYDROCHLORIDE
     Dosage: 80MG, Q1H AND 10-20MG Q1H, PRN
     Route: 042
  2. HYDROMORPHONE HYDROCHLORIDE. [Suspect]
     Active Substance: HYDROMORPHONE HYDROCHLORIDE
     Indication: DRUG WITHDRAWAL SYNDROME
     Dosage: UNK, Q1H (10-20 MG EVERY 1H AS NEEDED)
     Route: 042
  3. HYDROMORPHONE HYDROCHLORIDE. [Suspect]
     Active Substance: HYDROMORPHONE HYDROCHLORIDE
     Dosage: 10-20 MG EVERY HOUR PRN
     Route: 042
  4. HYDROMORPHONE HYDROCHLORIDE. [Suspect]
     Active Substance: HYDROMORPHONE HYDROCHLORIDE
     Dosage: 60 MG, Q4H AND 20-40MG Q1H, PRN
  5. FENTANYL. [Suspect]
     Active Substance: FENTANYL
     Indication: DRUG WITHDRAWAL SYNDROME
  6. HYDROMORPHONE HYDROCHLORIDE. [Suspect]
     Active Substance: HYDROMORPHONE HYDROCHLORIDE
     Dosage: 160MG TID, 20-30 Q1H, PRN
     Route: 042
  7. FENTANYL. [Suspect]
     Active Substance: FENTANYL
     Indication: ABDOMINAL PAIN LOWER
     Dosage: UNK
     Route: 065
  8. HYDROMORPHONE HYDROCHLORIDE. [Suspect]
     Active Substance: HYDROMORPHONE HYDROCHLORIDE
     Dosage: 40 MG, Q4H AND 10-30MG Q1H,PRN
     Route: 042
  9. HYDROMORPHONE HYDROCHLORIDE. [Suspect]
     Active Substance: HYDROMORPHONE HYDROCHLORIDE
     Dosage: 20 MG, Q3H AND 10-20 MG Q1H PRN
     Route: 042
  10. DIACETYLMORPHINE [Concomitant]
     Active Substance: DIAMORPHINE
     Indication: DRUG USE DISORDER
     Dosage: 330 MG FOR THE FIRST TWO DAILY DOSES AND 340 MG FOR THE THIRD DAILY DOSE
     Route: 042
  11. MORPHINE SULFATE. [Suspect]
     Active Substance: MORPHINE SULFATE
     Indication: ABDOMINAL PAIN LOWER
     Dosage: 50 MG, UNK
     Route: 048
  12. MORPHINE SULFATE. [Suspect]
     Active Substance: MORPHINE SULFATE
     Dosage: 10 MG, UNK
     Route: 042
  13. METRONIDAZOLE. [Suspect]
     Active Substance: METRONIDAZOLE
     Indication: POSTOPERATIVE CARE
     Dosage: 500 MG, BID
     Route: 042
  14. CEFTRIAXONE. [Suspect]
     Active Substance: CEFTRIAXONE
     Indication: POSTOPERATIVE CARE
     Dosage: 1 GRAM, DAILY
     Route: 042
  15. KETAMINE [Suspect]
     Active Substance: KETAMINE
     Indication: ABDOMINAL PAIN LOWER
     Dosage: 5 MG/ML, 0-20 ML/H
     Route: 041

REACTIONS (9)
  - Inadequate analgesia [Unknown]
  - Somnolence [Unknown]
  - Abdominal tenderness [Recovered/Resolved]
  - Hypertension [Unknown]
  - Drug ineffective [Unknown]
  - Drug withdrawal syndrome [Recovered/Resolved]
  - Abdominal pain [Recovered/Resolved]
  - Drug tolerance [Unknown]
  - Nausea [Unknown]
